FAERS Safety Report 10783923 (Version 5)
Quarter: 2015Q2

REPORT INFORMATION
  Report Type: Spontaneous
  Country: CA (occurrence: CA)
  Receive Date: 20150210
  Receipt Date: 20150528
  Transmission Date: 20150821
  Serious: Yes (Hospitalization, Other)
  Sender: FDA-Public Use
  Company Number: CA-ROCHE-1534017

PATIENT
  Age: 62 Year
  Sex: Female

DRUGS (12)
  1. XOLAIR [Suspect]
     Active Substance: OMALIZUMAB
     Route: 058
     Dates: start: 20150512
  2. SPIRIVA [Concomitant]
     Active Substance: TIOTROPIUM BROMIDE MONOHYDRATE
  3. XOLAIR [Suspect]
     Active Substance: OMALIZUMAB
     Route: 058
     Dates: start: 20131227
  4. SYMBICORT [Concomitant]
     Active Substance: BUDESONIDE\FORMOTEROL FUMARATE DIHYDRATE
  5. XOLAIR [Suspect]
     Active Substance: OMALIZUMAB
     Indication: ASTHMA
     Route: 058
     Dates: start: 20130926
  6. XOLAIR [Suspect]
     Active Substance: OMALIZUMAB
     Route: 058
     Dates: start: 20140403
  7. ASMANEX [Concomitant]
     Active Substance: MOMETASONE FUROATE
  8. DAXAS [Concomitant]
     Active Substance: ROFLUMILAST
  9. SALBUTAMOL [Concomitant]
     Active Substance: ALBUTEROL
  10. XOLAIR [Suspect]
     Active Substance: OMALIZUMAB
     Route: 058
     Dates: start: 20150416
  11. NEBIVOLOL HYDROCHLORIDE [Concomitant]
     Active Substance: NEBIVOLOL HYDROCHLORIDE
  12. XOLAIR [Suspect]
     Active Substance: OMALIZUMAB
     Route: 058
     Dates: start: 20140612

REACTIONS (36)
  - Lung infection [Unknown]
  - Heart rate increased [Not Recovered/Not Resolved]
  - Peripheral swelling [Unknown]
  - Breast pain [Unknown]
  - Nasopharyngitis [Unknown]
  - Bronchitis [Recovering/Resolving]
  - Bronchial disorder [Unknown]
  - Pain [Unknown]
  - Back pain [Unknown]
  - Body temperature fluctuation [Unknown]
  - Respiratory syncytial virus infection [Unknown]
  - Bone disorder [Unknown]
  - Chills [Unknown]
  - Respiratory rate increased [Unknown]
  - Sputum discoloured [Unknown]
  - Dyspnoea [Not Recovered/Not Resolved]
  - Haemoptysis [Unknown]
  - Gait disturbance [Unknown]
  - Dyspnoea exertional [Unknown]
  - Arthritis [Unknown]
  - Psychiatric symptom [Unknown]
  - Diabetes mellitus [Unknown]
  - Malaise [Not Recovered/Not Resolved]
  - Pulmonary function test decreased [Unknown]
  - Diarrhoea [Unknown]
  - Asthmatic crisis [Unknown]
  - Bronchial obstruction [Unknown]
  - Asthenia [Not Recovered/Not Resolved]
  - Breast swelling [Unknown]
  - Erythema [Unknown]
  - Sinusitis [Unknown]
  - Influenza [Unknown]
  - Fear [Unknown]
  - Fatigue [Unknown]
  - Drug ineffective [Unknown]
  - Oedema peripheral [Unknown]

NARRATIVE: CASE EVENT DATE: 201311
